FAERS Safety Report 6538782-5 (Version None)
Quarter: 2010Q1

REPORT INFORMATION
  Report Type: 
  Country: None (occurrence: None)
  Receive Date: 20100115
  Receipt Date: 20100104
  Transmission Date: 20100710
  Serious: No
  Sender: FDA-Public Use
  Company Number: US-B.I. PHARMACEUTICALS,INC./RIDGEFIELD-2010-BP-00039BP

PATIENT
  Sex: Female

DRUGS (3)
  1. SPIRIVA [Suspect]
     Indication: CHRONIC OBSTRUCTIVE PULMONARY DISEASE
     Dosage: 18 MCG
     Route: 055
     Dates: start: 20091001
  2. REFRESH PLUS [Concomitant]
     Indication: RETINAL DISORDER
  3. VICODIN [Concomitant]
     Indication: PAIN

REACTIONS (3)
  - COUGH [None]
  - URINARY TRACT INFECTION [None]
  - URINE OUTPUT DECREASED [None]
